FAERS Safety Report 12317167 (Version 3)
Quarter: 2016Q2

REPORT INFORMATION
  Report Type: Spontaneous
  Country: IE (occurrence: IE)
  Receive Date: 20160429
  Receipt Date: 20160505
  Transmission Date: 20160815
  Serious: Yes (Other)
  Sender: FDA-Public Use
  Company Number: IE-APOTEX-2016AP008118

PATIENT
  Age: 39 Year
  Sex: Female

DRUGS (1)
  1. PAXIL [Suspect]
     Active Substance: PAROXETINE HYDROCHLORIDE
     Indication: DEPRESSION
     Dosage: 25 MG, QD
     Route: 065
     Dates: start: 2012

REACTIONS (7)
  - Insomnia [Unknown]
  - Lower respiratory tract infection [Recovered/Resolved]
  - Depression [Unknown]
  - Condition aggravated [Unknown]
  - Drug ineffective [Unknown]
  - Skin burning sensation [Unknown]
  - Menstrual disorder [Recovering/Resolving]

NARRATIVE: CASE EVENT DATE: 201603
